FAERS Safety Report 24903051 (Version 1)
Quarter: 2025Q1

REPORT INFORMATION
  Report Type: Report from Study
  Country: IN (occurrence: IN)
  Receive Date: 20250130
  Receipt Date: 20250130
  Transmission Date: 20250409
  Serious: Yes (Other)
  Sender: ROCHE
  Company Number: IN-ROCHE-10000189515

PATIENT
  Age: 34 Year
  Sex: Male
  Weight: 125.3 kg

DRUGS (1)
  1. POLIVY [Suspect]
     Active Substance: POLATUZUMAB VEDOTIN-PIIQ
     Indication: Diffuse large B-cell lymphoma
     Route: 040
     Dates: start: 20241113

REACTIONS (6)
  - Pneumonia [Unknown]
  - Lymphoma [Unknown]
  - Lymphoma [Unknown]
  - Fat tissue increased [Unknown]
  - Pleural effusion [Unknown]
  - Atelectasis [Unknown]
